FAERS Safety Report 14452408 (Version 2)
Quarter: 2018Q1

REPORT INFORMATION
  Report Type: Spontaneous
  Country: US (occurrence: US)
  Receive Date: 20180129
  Receipt Date: 20180220
  Transmission Date: 20180509
  Serious: No
  Sender: FDA-Public Use
  Company Number: US-PFIZER INC-2018036861

PATIENT
  Age: 59 Year
  Sex: Female

DRUGS (5)
  1. ALLEGRA [Concomitant]
     Active Substance: FEXOFENADINE HYDROCHLORIDE
     Indication: DERMATITIS ATOPIC
     Dosage: 180 MG, DAILY
     Dates: start: 20180109
  2. KETOTIFEN [Concomitant]
     Active Substance: KETOTIFEN
     Indication: DERMATITIS ATOPIC
     Dosage: UNK, AS NEEDED [1-2 DROPS PER EYE EVERY 12 HOURS PRN]
     Route: 047
     Dates: start: 20180109
  3. EUCRISA [Suspect]
     Active Substance: CRISABOROLE
     Indication: DERMATITIS ATOPIC
     Dosage: UNK, AS NEEDED (APPLY TO ECZEMA TWICE A DAY )
     Route: 061
     Dates: start: 20171121
  4. EUCRISA [Suspect]
     Active Substance: CRISABOROLE
     Dosage: UNK
     Dates: start: 20171204
  5. FLONASE [Concomitant]
     Active Substance: FLUTICASONE PROPIONATE
     Indication: CONJUNCTIVITIS ALLERGIC
     Dosage: DAILY [2 SPRAYS PER NOSTRIL ]
     Route: 045
     Dates: start: 20171121

REACTIONS (2)
  - Application site pain [Unknown]
  - Skin burning sensation [Unknown]

NARRATIVE: CASE EVENT DATE: 201801
